FAERS Safety Report 13329760 (Version 1)
Quarter: 2017Q1

REPORT INFORMATION
  Report Type: Spontaneous
  Country: US (occurrence: US)
  Receive Date: 20170313
  Receipt Date: 20170313
  Transmission Date: 20170428
  Serious: No
  Sender: FDA-Public Use
  Company Number: US-SHIRE-US201705314

PATIENT
  Age: 67 Year
  Sex: Female
  Weight: 74.38 kg

DRUGS (8)
  1. XIIDRA [Suspect]
     Active Substance: LIFITEGRAST
     Indication: DRY EYE
     Dosage: 1 GTT, 2X/DAY:BID ( ONE DROP IN BOTH EYES)
     Route: 047
     Dates: start: 20170307, end: 20170307
  2. DUREZOL [Concomitant]
     Active Substance: DIFLUPREDNATE
     Indication: CATARACT OPERATION
     Dosage: UNK , 2X/DAY:BID (ONE DROP)
     Route: 047
     Dates: start: 201701
  3. ZANTAC [Concomitant]
     Active Substance: RANITIDINE HYDROCHLORIDE
     Indication: GASTROOESOPHAGEAL REFLUX DISEASE
     Dosage: 75 MG, 1X/DAY:QD
     Route: 048
     Dates: start: 2014
  4. CALCIUM PLUS D3 [Concomitant]
     Indication: OSTEOPOROSIS
     Dosage: 600 MG, 1X/DAY:QD
     Route: 048
  5. VITAMINS NOS [Concomitant]
     Active Substance: VITAMINS
     Indication: NUTRITIONAL SUPPLEMENTATION
     Dosage: UNK UNK, 1X/DAY:QD
     Route: 048
  6. MOTRIN [Concomitant]
     Active Substance: IBUPROFEN
     Indication: ARTHRITIS
     Dosage: 800 MG, 2X/DAY:BID
     Route: 048
     Dates: start: 2014
  7. LISINOPRIL. [Concomitant]
     Active Substance: LISINOPRIL
     Indication: HYPERTENSION
     Dosage: 20 MG, 1X/DAY:QD
     Route: 048
     Dates: start: 2016
  8. PROBIOTIC                          /06395501/ [Concomitant]
     Active Substance: BIFIDOBACTERIUM ANIMALIS SUBSP. LACTIS
     Indication: GASTROINTESTINAL DISORDER
     Dosage: UNK, UNKNOWN
     Route: 065

REACTIONS (2)
  - Instillation site pruritus [Recovered/Resolved]
  - Instillation site pain [Recovered/Resolved]

NARRATIVE: CASE EVENT DATE: 20170307
